FAERS Safety Report 5149309-7 (Version None)
Quarter: 2006Q4

REPORT INFORMATION
  Report Type: 
  Country: None (occurrence: None)
  Receive Date: 20061113
  Receipt Date: 20061108
  Transmission Date: 20070319
  Serious: Yes (Life-Threatening, Hospitalization)
  Sender: FDA-Public Use
  Company Number: 469328

PATIENT
  Age: 75 Year
  Sex: Male

DRUGS (3)
  1. COROPRES [Suspect]
     Indication: DRUG USE FOR UNKNOWN INDICATION
     Dosage: 50MG PER DAY
     Route: 048
  2. MANIDON [Suspect]
     Indication: CARDIOMYOPATHY
     Dosage: 240MG PER DAY
     Route: 048
     Dates: end: 20060602
  3. CARDURAN NEO [Suspect]
     Indication: DRUG USE FOR UNKNOWN INDICATION
     Dosage: 4MG PER DAY
     Route: 048

REACTIONS (3)
  - BRADYCARDIA [None]
  - CARDIOVASCULAR INSUFFICIENCY [None]
  - DRUG INTERACTION [None]
